FAERS Safety Report 13050514 (Version 1)
Quarter: 2016Q4

REPORT INFORMATION
  Report Type: Spontaneous
  Country: DK (occurrence: DK)
  Receive Date: 20161221
  Receipt Date: 20161221
  Transmission Date: 20170207
  Serious: Yes (Hospitalization)
  Sender: FDA-Public Use
  Company Number: DK-CONCORDIA PHARMACEUTICALS INC.-GSH201612-006478

PATIENT
  Age: 36 Year
  Sex: Female

DRUGS (1)
  1. PLAQUENIL [Suspect]
     Active Substance: HYDROXYCHLOROQUINE SULFATE
     Indication: HABITUAL ABORTION
     Route: 048
     Dates: start: 2015

REACTIONS (2)
  - Breast cancer female [Recovered/Resolved]
  - Mastectomy [Unknown]

NARRATIVE: CASE EVENT DATE: 201609
